FAERS Safety Report 6305383-3 (Version None)
Quarter: 2009Q3

REPORT INFORMATION
  Report Type: 
  Country: None (occurrence: None)
  Receive Date: 20090810
  Receipt Date: 20090810
  Transmission Date: 20100115
  Serious: Yes (Disabling)
  Sender: FDA-Public Use
  Company Number: None

PATIENT
  Sex: Female
  Weight: 60.3284 kg

DRUGS (1)
  1. FOSAMAX [Suspect]
     Indication: OSTEOPOROSIS
     Dosage: AS ABOVE 1 A WEEK
     Dates: start: 20010901, end: 20070101

REACTIONS (3)
  - INFECTION [None]
  - OSTEONECROSIS [None]
  - PAIN [None]
